FAERS Safety Report 7348679 (Version 5)
Quarter: 2012Q4

REPORT INFORMATION
  Report Type: Report from Study
  Country: JP (occurrence: JP)
  Receive Date: 20100408
  Receipt Date: 20121231
  Transmission Date: 20130627
  Serious: Yes (Death, Other)
  Sender: FDA-Public Use
  Company Number: PHHY2010JP20486

PATIENT
  Age: 72 Year
  Sex: Female
  Weight: 65 kg

DRUGS (38)
  1. ICL670A [Suspect]
     Indication: IRON OVERLOAD
     Dosage: 1125 mg, daily
     Route: 048
     Dates: start: 20091227, end: 20100125
  2. ICL670A [Suspect]
     Dosage: 500 mg, daily
     Route: 048
     Dates: start: 20100125, end: 20100226
  3. LOXONIN [Suspect]
     Indication: RENAL DISORDER
     Dosage: 3 DF, (3 tablet daily)
     Route: 048
     Dates: start: 20090219, end: 20100226
  4. THYMOGLOBULINE [Suspect]
     Dosage: 240 mg, UNK
     Route: 042
     Dates: start: 20100122, end: 20100126
  5. NEORAL [Concomitant]
     Dosage: 50 mg, UNK
     Route: 048
     Dates: start: 20091001
  6. NEORAL [Concomitant]
     Dosage: 100 mg, UNK
     Route: 048
     Dates: end: 20100226
  7. GASTER [Concomitant]
     Indication: PROPHYLAXIS
     Dosage: 40 mg, UNK
     Route: 048
     Dates: start: 20090122, end: 20100212
  8. METHYLCOBALAMIN [Concomitant]
     Indication: RENAL DISORDER
     Dosage: 1500 ug, UNK
     Route: 048
     Dates: start: 20090219, end: 20100226
  9. NEUROTROPIN [Concomitant]
     Indication: RENAL DISORDER
     Dosage: 16 DF, UNK
     Route: 048
     Dates: start: 20090219, end: 20100226
  10. BONZOL [Concomitant]
     Dosage: 400 mg, UNK
     Route: 048
     Dates: start: 20091023, end: 20100220
  11. LASIX [Concomitant]
     Indication: RENAL DISORDER
     Dosage: 20 mg, UNK
     Route: 048
     Dates: start: 20090509
  12. LASIX [Concomitant]
     Dosage: 40 mg, UNK
     Route: 048
     Dates: end: 20100226
  13. PREDNISOLONE [Concomitant]
     Dosage: 25 mg, UNK
     Route: 048
     Dates: start: 20091223
  14. PREDNISOLONE [Concomitant]
     Dosage: 85 mg, UNK
     Route: 048
  15. PREDNISOLONE [Concomitant]
     Dosage: 30 mg, UNK
     Route: 048
  16. PREDNISOLONE [Concomitant]
     Dosage: 15 mg, UNK
     Route: 048
  17. PREDNISOLONE [Concomitant]
     Dosage: 10 mg, UNK
     Route: 048
     Dates: end: 20100226
  18. METHYLPREDNISOLONE SODIUM SUCCINATE [Concomitant]
     Dosage: 125 mg, UNK
     Route: 042
     Dates: start: 20100122, end: 20100126
  19. PREDONINE [Concomitant]
     Dosage: 15 mg, UNK
     Route: 042
     Dates: start: 20100213, end: 20100214
  20. SAXIZON [Concomitant]
     Indication: PROPHYLAXIS
     Dosage: 200 mg, UNK
     Route: 042
     Dates: start: 20100107, end: 201002
  21. CALONAL [Concomitant]
     Dosage: 400 mg, UNK
     Route: 048
     Dates: start: 20100122, end: 20100126
  22. CRAVIT [Concomitant]
     Indication: PROPHYLAXIS
     Dosage: 500 mg, UNK
     Route: 048
     Dates: start: 20100125, end: 20100212
  23. DIFLUCAN [Concomitant]
     Indication: PROPHYLAXIS
     Dosage: 200 mg, UNK
     Route: 048
     Dates: start: 20100122, end: 20100212
  24. GRAN [Concomitant]
     Dosage: 600 ug, UNK
     Route: 042
     Dates: start: 20100122
  25. GRAN [Concomitant]
     Dosage: 300 ug, UNK
     Dates: end: 20100217
  26. BAKTAR [Concomitant]
     Dosage: 1 g, UNK
     Route: 048
     Dates: start: 20090122, end: 20100226
  27. PLATELETS, HUMAN BLOOD [Concomitant]
     Dosage: 20 U, UNK
     Dates: start: 20100107
  28. PLATELETS, HUMAN BLOOD [Concomitant]
     Dosage: 10 U, UNK
     Dates: start: 20100119
  29. PLATELETS, HUMAN BLOOD [Concomitant]
     Dosage: 20 U, twice a week
     Dates: start: 20100119, end: 20100127
  30. PLATELETS, HUMAN BLOOD [Concomitant]
     Dosage: 20 U, every two days
     Dates: start: 20100127, end: 20100131
  31. PLATELETS, HUMAN BLOOD [Concomitant]
     Dosage: 20 U, every day
     Dates: start: 20100131, end: 20100201
  32. PLATELETS, HUMAN BLOOD [Concomitant]
     Dosage: 20 U, twice  a week
     Dates: start: 20100201, end: 20100212
  33. PLATELETS, HUMAN BLOOD [Concomitant]
     Dosage: 20 U, every two days
     Dates: start: 20100212, end: 20100216
  34. PLATELETS, HUMAN BLOOD [Concomitant]
     Dosage: 20 U, twice a week
     Dates: start: 20100216, end: 20100224
  35. ANALGESICS [Concomitant]
  36. ANTIBIOTICS [Concomitant]
  37. DIURETICS [Concomitant]
  38. IMMUNOSUPPRESSANTS [Concomitant]

REACTIONS (14)
  - Gastric ulcer haemorrhage [Fatal]
  - Duodenal ulcer haemorrhage [Fatal]
  - Subdural haematoma [Fatal]
  - Disseminated intravascular coagulation [Fatal]
  - Multi-organ failure [Fatal]
  - Fall [Unknown]
  - Pneumonia [Not Recovered/Not Resolved]
  - White blood cell count decreased [Recovered/Resolved]
  - Renal impairment [Not Recovered/Not Resolved]
  - Ascites [Unknown]
  - Monocyte count decreased [Not Recovered/Not Resolved]
  - Blood creatinine increased [Unknown]
  - Blood urea increased [Unknown]
  - Blood urine present [Unknown]
